FAERS Safety Report 18431973 (Version 2)
Quarter: 2020Q4

REPORT INFORMATION
  Report Type: Spontaneous
  Country: US (occurrence: US)
  Receive Date: 20201027
  Receipt Date: 20201112
  Transmission Date: 20210114
  Serious: Yes (Life-Threatening, Hospitalization)
  Sender: FDA-Public Use
  Company Number: US-JNJFOC-20201022718

PATIENT
  Age: 27 Year
  Sex: Female

DRUGS (1)
  1. PARACETAMOL [Suspect]
     Active Substance: ACETAMINOPHEN
     Indication: PRODUCT USED FOR UNKNOWN INDICATION
     Dosage: DOSE: MORE THAN 50 TABLETS OVER 3-4 DAYS
     Route: 048

REACTIONS (4)
  - Acute hepatic failure [Recovering/Resolving]
  - Shock [Recovering/Resolving]
  - Renal impairment [Recovering/Resolving]
  - Overdose [Recovering/Resolving]
